FAERS Safety Report 11866871 (Version 2)
Quarter: 2016Q1

REPORT INFORMATION
  Report Type: Spontaneous
  Country: DE (occurrence: DE)
  Receive Date: 20151224
  Receipt Date: 20160201
  Transmission Date: 20160526
  Serious: Yes (Other)
  Sender: FDA-Public Use
  Company Number: PHHY2015DE166513

PATIENT
  Sex: Male
  Weight: 95 kg

DRUGS (1)
  1. SANDIMMUN [Suspect]
     Active Substance: CYCLOSPORINE
     Indication: STEM CELL TRANSPLANT
     Dosage: 1.25 MG/KG, UNK
     Route: 042

REACTIONS (2)
  - Musculoskeletal pain [Recovering/Resolving]
  - Mucosal inflammation [Unknown]

NARRATIVE: CASE EVENT DATE: 20151103
